FAERS Safety Report 18485817 (Version 1)
Quarter: 2020Q4

REPORT INFORMATION
  Report Type: Spontaneous
  Country: TR (occurrence: TR)
  Receive Date: 20201110
  Receipt Date: 20201110
  Transmission Date: 20210114
  Serious: Yes (Disabling)
  Sender: FDA-Public Use
  Company Number: TR-PFIZER INC-2020436064

PATIENT
  Age: 24 Year
  Sex: Female
  Weight: 52 kg

DRUGS (4)
  1. LUSTRAL [Suspect]
     Active Substance: SERTRALINE HYDROCHLORIDE
     Indication: BIPOLAR DISORDER
     Dosage: UNK
     Dates: start: 20200917
  2. OZAPRIN [Suspect]
     Active Substance: OLANZAPINE
     Indication: MENTAL DISORDER
  3. OZAPRIN [Suspect]
     Active Substance: OLANZAPINE
     Indication: BIPOLAR DISORDER
     Dosage: UNK
     Route: 048
  4. ANAFRANIL [Suspect]
     Active Substance: CLOMIPRAMINE HYDROCHLORIDE
     Indication: BIPOLAR DISORDER
     Dosage: UNK

REACTIONS (4)
  - Blepharospasm [Unknown]
  - Off label use [Unknown]
  - Product use in unapproved indication [Unknown]
  - Eye movement disorder [Unknown]

NARRATIVE: CASE EVENT DATE: 20200917
